FAERS Safety Report 7443027-8 (Version None)
Quarter: 2011Q2

REPORT INFORMATION
  Report Type: 
  Country: None (occurrence: None)
  Receive Date: 20110428
  Receipt Date: 20110427
  Transmission Date: 20111010
  Serious: Yes (Life-Threatening, Hospitalization)
  Sender: FDA-Public Use
  Company Number: US-B.I. PHARMACEUTICALS,INC./RIDGEFIELD-2011-BP-01918BP

PATIENT
  Age: 60 Year
  Sex: Male
  Weight: 36.29 kg

DRUGS (13)
  1. ADVAIR DISKUS 100/50 [Concomitant]
  2. PRADAXA [Suspect]
     Indication: ATRIAL FIBRILLATION
     Dosage: 150 MG
     Dates: end: 20110124
  3. ALLOPURINOL [Concomitant]
  4. LEVOTHYROXINE SODIUM [Concomitant]
  5. CARVEDILOL [Concomitant]
  6. BUMETANIDE [Concomitant]
  7. ALBUTEROL [Concomitant]
  8. PRADAXA [Suspect]
     Indication: CARDIAC MURMUR
  9. COUMADIN [Concomitant]
     Route: 048
  10. REVATIO [Concomitant]
  11. HYDRALAZINE [Concomitant]
  12. DIGOXIN [Concomitant]
  13. CYCLOBENZAMIBE [Concomitant]

REACTIONS (4)
  - HAEMOPTYSIS [None]
  - HAEMORRHAGE [None]
  - BLOOD FIBRINOGEN DECREASED [None]
  - MELAENA [None]
